FAERS Safety Report 9186115 (Version 1)
Quarter: 2013Q1

REPORT INFORMATION
  Report Type: Spontaneous
  Country: US (occurrence: US)
  Receive Date: 20130325
  Receipt Date: 20130325
  Transmission Date: 20140127
  Serious: Yes (Other)
  Sender: FDA-Public Use
  Company Number: US-JNJCP-30000152509

PATIENT
  Sex: Male
  Weight: 31 kg

DRUGS (13)
  1. AVEENO DAILY MOISTURIZING SPF15 [Suspect]
     Indication: ECZEMA
     Dosage: TWO PUMPS, ON EACH LEG, ADDITIONAL ON CHEEK, TWICE TOTAL
     Route: 061
     Dates: start: 20121201, end: 20130306
  2. NO DRUG NAME [Concomitant]
  3. NO DRUG NAME [Concomitant]
  4. NO DRUG NAME [Concomitant]
  5. NO DRUG NAME [Concomitant]
  6. NO DRUG NAME [Concomitant]
  7. NO DRUG NAME [Concomitant]
  8. NO DRUG NAME [Concomitant]
  9. NO DRUG NAME [Concomitant]
  10. NO DRUG NAME [Concomitant]
  11. NO DRUG NAME [Concomitant]
  12. NO DRUG NAME [Concomitant]
  13. NO DRUG NAME [Concomitant]

REACTIONS (8)
  - Paraesthesia oral [Recovered/Resolved]
  - Throat tightness [Recovered/Resolved]
  - Diarrhoea [Recovered/Resolved]
  - Application site urticaria [Recovered/Resolved]
  - Shock [Recovered/Resolved]
  - Paraesthesia oral [Recovered/Resolved]
  - Off label use [Unknown]
  - Anaphylactic reaction [None]
